FAERS Safety Report 11448445 (Version 4)
Quarter: 2015Q4

REPORT INFORMATION
  Report Type: Spontaneous
  Country: CN (occurrence: CN)
  Receive Date: 20150902
  Receipt Date: 20151030
  Transmission Date: 20160304
  Serious: Yes (Life-Threatening, Hospitalization)
  Sender: FDA-Public Use
  Company Number: CN-GE HEALTHCARE MEDICAL DIAGNOSTICS-OSCN-PR-1508S-0173

PATIENT
  Age: 27 Year
  Sex: Female
  Weight: 65 kg

DRUGS (2)
  1. OMNISCAN [Suspect]
     Active Substance: GADODIAMIDE
     Indication: DIAGNOSTIC PROCEDURE
  2. OMNISCAN [Suspect]
     Active Substance: GADODIAMIDE
     Indication: PRODUCT USED FOR UNKNOWN INDICATION
     Route: 042
     Dates: start: 20150820, end: 20150820

REACTIONS (9)
  - Suffocation feeling [Recovering/Resolving]
  - Aphonia [Recovering/Resolving]
  - Feeling cold [Recovering/Resolving]
  - Contrast media allergy [Recovering/Resolving]
  - Tachycardia [Recovering/Resolving]
  - Dysphonia [Recovering/Resolving]
  - Blood pressure increased [Recovering/Resolving]
  - Muscular weakness [Recovering/Resolving]
  - Rash [Recovering/Resolving]

NARRATIVE: CASE EVENT DATE: 20150820
